FAERS Safety Report 5513319-8 (Version None)
Quarter: 2007Q4

REPORT INFORMATION
  Report Type: 
  Country: None (occurrence: None)
  Receive Date: 20071112
  Receipt Date: 20071031
  Transmission Date: 20080405
  Serious: Yes (Other)
  Sender: FDA-Public Use
  Company Number: GB-PFIZER INC-2007092496

PATIENT
  Age: 55 Year
  Sex: Female
  Weight: 60 kg

DRUGS (9)
  1. GABAPENTIN [Suspect]
     Indication: PAIN
     Route: 048
     Dates: start: 20050501, end: 20061112
  2. ALFENTANIL [Interacting]
     Indication: GENERAL ANAESTHESIA
     Route: 042
     Dates: start: 20050701, end: 20061201
  3. DEXAMETHASONE [Interacting]
     Indication: ANAESTHESIA
     Route: 042
     Dates: start: 20050701, end: 20050701
  4. FENTANYL [Interacting]
     Indication: GENERAL ANAESTHESIA
     Route: 042
     Dates: start: 20050701, end: 20050701
  5. ISOFLURANE [Interacting]
     Indication: GENERAL ANAESTHESIA
     Route: 055
     Dates: start: 20060601, end: 20060601
  6. PROPOFOL [Interacting]
     Indication: GENERAL ANAESTHESIA
     Route: 042
     Dates: start: 20060601, end: 20060601
  7. SEVOFLURANE [Interacting]
     Indication: GENERAL ANAESTHESIA
     Dosage: TEXT:1 DROPPERFUL ONCE A DAY
     Route: 055
     Dates: start: 20061201, end: 20061201
  8. CODEINE SUL TAB [Concomitant]
     Indication: PAIN
     Dosage: FREQ:WHEN NEEDED
     Route: 048
  9. PARACETAMOL [Concomitant]
     Indication: PAIN
     Route: 048

REACTIONS (3)
  - DRUG INTERACTION [None]
  - MOVEMENT DISORDER [None]
  - SINUS TACHYCARDIA [None]
